FAERS Safety Report 5701825-2 (Version None)
Quarter: 2008Q2

REPORT INFORMATION
  Report Type: 
  Country: None (occurrence: None)
  Receive Date: 20080408
  Receipt Date: 20080325
  Transmission Date: 20081010
  Serious: Yes (Hospitalization)
  Sender: FDA-Public Use
  Company Number: 2008AL001922

PATIENT
  Age: 86 Year
  Sex: Male

DRUGS (9)
  1. ENULOSE [Suspect]
     Dosage: 10 ML; BID; PO
     Route: 048
  2. DIGOXIN [Suspect]
  3. ACETYLSALICYLIC ACID SRT [Concomitant]
  4. ATENOLOL [Concomitant]
  5. CHLORPHENIRAMINE MALEATE [Concomitant]
  6. BENDROFLUMETHIAZIDE [Concomitant]
  7. URSODIOL [Concomitant]
  8. PREDNISOLONE [Concomitant]
  9. AQUEOUS CREAM [Concomitant]

REACTIONS (1)
  - JAUNDICE [None]
